FAERS Safety Report 10227353 (Version 2)
Quarter: 2014Q2

REPORT INFORMATION
  Report Type: Spontaneous
  Country: US (occurrence: US)
  Receive Date: 20140610
  Receipt Date: 20140625
  Transmission Date: 20141212
  Serious: Yes (Other)
  Sender: FDA-Public Use
  Company Number: US-PFIZER INC-2014157338

PATIENT
  Age: 56 Year
  Sex: Female
  Weight: 81.63 kg

DRUGS (7)
  1. NEURONTIN [Suspect]
     Dosage: UNK
  2. IBUPROFEN [Concomitant]
     Dosage: 800 MG, 3X/DAY
  3. METHADONE [Concomitant]
     Dosage: 20 MG, EVERY 8 HOURS
  4. BACLOFEN [Concomitant]
     Dosage: 10 MG, 3X/DAY
  5. OXYCODONE [Concomitant]
     Dosage: 15 MG, EVERY 4 HRS
  6. VALIUM [Concomitant]
     Dosage: 10 MG, 4X/DAY
  7. MICARDIS HCT [Concomitant]
     Dosage: (HYDROCHLOROTHIAZIDE 25MG/ TELMISARTAN 80MG),DAILY

REACTIONS (1)
  - Convulsion [Unknown]
